FAERS Safety Report 6945247-5 (Version None)
Quarter: 2010Q3

REPORT INFORMATION
  Report Type: 
  Country: None (occurrence: None)
  Receive Date: 20100827
  Receipt Date: 20100727
  Transmission Date: 20110219
  Serious: No
  Sender: FDA-Public Use
  Company Number: US-KINGPHARMUSA00001-K201000925

PATIENT
  Sex: Male

DRUGS (2)
  1. FLECTOR [Suspect]
     Indication: MYOSITIS
     Dosage: UNK
     Route: 061
  2. FLECTOR [Suspect]
     Indication: HIP ARTHROPLASTY

REACTIONS (1)
  - DRUG INEFFECTIVE [None]
